FAERS Safety Report 6718715-9 (Version None)
Quarter: 2010Q2

REPORT INFORMATION
  Report Type: 
  Country: None (occurrence: None)
  Receive Date: 20100505
  Receipt Date: 20100423
  Transmission Date: 20101027
  Serious: Yes (Hospitalization)
  Sender: FDA-Public Use
  Company Number: B0650411A

PATIENT
  Age: 3 Month
  Sex: Male

DRUGS (5)
  1. DIGOXIN [Suspect]
     Indication: CARDIAC FAILURE
  2. ENALAPRIL MALEATE [Suspect]
  3. DIURETIC-50 TAB [Suspect]
  4. FRUSEMIDE [Concomitant]
  5. SPIRONOLACTONE [Concomitant]

REACTIONS (6)
  - DIARRHOEA [None]
  - ELECTROCARDIOGRAM T WAVE PEAKED [None]
  - HYPOVOLAEMIA [None]
  - RENAL FAILURE [None]
  - SEPSIS [None]
  - THERAPEUTIC AGENT TOXICITY [None]
